FAERS Safety Report 25321295 (Version 1)
Quarter: 2025Q2

REPORT INFORMATION
  Report Type: Spontaneous
  Country: US (occurrence: US)
  Receive Date: 20250515
  Receipt Date: 20250515
  Transmission Date: 20250716
  Serious: Yes (Hospitalization, Other)
  Sender: NEUROCRINE BIOSCIENCES
  Company Number: US-NEUROCRINE BIOSCIENCES INC.-2025NBI05914

PATIENT
  Sex: Female

DRUGS (2)
  1. INGREZZA [Suspect]
     Active Substance: VALBENAZINE DITOSYLATE
     Indication: Tardive dyskinesia
     Route: 065
  2. REXULTI [Concomitant]
     Active Substance: BREXPIPRAZOLE

REACTIONS (4)
  - Psychiatric decompensation [Unknown]
  - Suicide attempt [Unknown]
  - Drug abuse [Unknown]
  - Treatment noncompliance [Unknown]
